FAERS Safety Report 14326549 (Version 1)
Quarter: 2017Q4

REPORT INFORMATION
  Report Type: Spontaneous
  Country: US (occurrence: US)
  Receive Date: 20171226
  Receipt Date: 20171226
  Transmission Date: 20180321
  Serious: Yes (Other)
  Sender: FDA-Public Use
  Company Number: None

PATIENT
  Age: 46 Year
  Sex: Female
  Weight: 72 kg

DRUGS (10)
  1. KEYTRUDA [Concomitant]
     Active Substance: PEMBROLIZUMAB
  2. MULTIVITAMIN [Concomitant]
     Active Substance: VITAMINS
  3. NATURTHROID [Concomitant]
  4. FISH OIL [Concomitant]
     Active Substance: FISH OIL
  5. FASTIN [Suspect]
     Active Substance: PHENTERMINE HYDROCHLORIDE
     Indication: WEIGHT CONTROL
     Dosage: ?          QUANTITY:1 TABLET(S);?
     Route: 048
  6. MERIVA [Concomitant]
  7. HYDROCODONE BITARTRATE AND ACETAMINOPHEN [Concomitant]
     Active Substance: ACETAMINOPHEN\HYDROCODONE BITARTRATE
  8. VITAMIN D [Concomitant]
     Active Substance: CHOLECALCIFEROL
  9. ADRENAL SUPPORT [Concomitant]
     Active Substance: HOMEOPATHICS
  10. I-THEANINE [Concomitant]

REACTIONS (3)
  - Product colour issue [None]
  - Palpitations [None]
  - Blood pressure decreased [None]

NARRATIVE: CASE EVENT DATE: 20171215
